FAERS Safety Report 14112765 (Version 2)
Quarter: 2017Q4

REPORT INFORMATION
  Report Type: Report from Study
  Country: US (occurrence: US)
  Receive Date: 20171021
  Receipt Date: 20171028
  Transmission Date: 20180321
  Serious: Yes (Death, Other)
  Sender: FDA-Public Use
  Company Number: US-TESARO, INC-US-2017TSO03350

PATIENT

DRUGS (1)
  1. ZEJULA [Suspect]
     Active Substance: NIRAPARIB
     Indication: OVARIAN CANCER
     Dosage: 100 MG ALTERNATING WITH 200 MG QPM
     Route: 048
     Dates: start: 20170811, end: 201710

REACTIONS (4)
  - Lung neoplasm [Not Recovered/Not Resolved]
  - Fatigue [Not Recovered/Not Resolved]
  - Death [Fatal]
  - Incorrect dose administered [Recovered/Resolved]

NARRATIVE: CASE EVENT DATE: 201710
